FAERS Safety Report 8094047-4 (Version None)
Quarter: 2012Q1

REPORT INFORMATION
  Report Type: 
  Country: None (occurrence: None)
  Receive Date: 20120131
  Receipt Date: 20120123
  Transmission Date: 20120608
  Serious: Yes (Hospitalization)
  Sender: FDA-Public Use
  Company Number: DE-BRISTOL-MYERS SQUIBB COMPANY-16364507

PATIENT

DRUGS (1)
  1. REYATAZ [Suspect]

REACTIONS (1)
  - DYSPHAGIA [None]
